FAERS Safety Report 8034607-X (Version None)
Quarter: 2012Q1

REPORT INFORMATION
  Report Type: 
  Country: None (occurrence: None)
  Receive Date: 20120110
  Receipt Date: 20120103
  Transmission Date: 20120608
  Serious: Yes (Hospitalization, Other)
  Sender: FDA-Public Use
  Company Number: FR-RB-036148-12

PATIENT
  Sex: Female

DRUGS (5)
  1. CLONAZEPAM [Suspect]
     Dosage: DOSAGE DETAILS UNKNOWN
     Route: 065
     Dates: end: 20050101
  2. CLONAZEPAM [Suspect]
     Indication: PRODUCT USED FOR UNKNOWN INDICATION
     Dosage: UNIT DOSE OF 40 DROPS 3 X DAILY
     Route: 065
     Dates: start: 20050101
  3. SUBUTEX [Suspect]
     Indication: PRODUCT USED FOR UNKNOWN INDICATION
     Dosage: DOSAGE UNKNOWN
     Route: 065
     Dates: end: 20050101
  4. LEXOMIL ROCHE COMPRIME BAGUETTE [Suspect]
     Indication: PRODUCT USED FOR UNKNOWN INDICATION
     Dosage: DOSAGE DETAILS UNKNOWN
     Route: 065
  5. SUBUTEX [Suspect]
     Route: 065
     Dates: start: 20050101

REACTIONS (12)
  - HYPERHIDROSIS [None]
  - MYALGIA [None]
  - MYDRIASIS [None]
  - FORCEPS DELIVERY [None]
  - MATERNAL EXPOSURE DURING PREGNANCY [None]
  - PLACENTAL DISORDER [None]
  - DECREASED APPETITE [None]
  - DRUG WITHDRAWAL SYNDROME [None]
  - TREMOR [None]
  - CONSTIPATION [None]
  - INAPPROPRIATE SCHEDULE OF DRUG ADMINISTRATION [None]
  - PROLONGED PREGNANCY [None]
